FAERS Safety Report 7271830-6 (Version None)
Quarter: 2011Q1

REPORT INFORMATION
  Report Type: 
  Country: None (occurrence: None)
  Receive Date: 20110203
  Receipt Date: 20110131
  Transmission Date: 20110831
  Serious: Yes (Hospitalization)
  Sender: FDA-Public Use
  Company Number: NL-MEDIMMUNE-MEDI-0012360

PATIENT
  Sex: Male
  Weight: 7 kg

DRUGS (2)
  1. SYNAGIS [Suspect]
     Route: 030
     Dates: start: 20101105, end: 20101231
  2. SYNAGIS [Suspect]
     Route: 030
     Dates: start: 20110127

REACTIONS (3)
  - RESPIRATORY SYNCYTIAL VIRUS INFECTION [None]
  - DIAPHRAGMATIC DISORDER [None]
  - MALAISE [None]
